FAERS Safety Report 8863380 (Version 2)
Quarter: 2014Q1

REPORT INFORMATION
  Report Type: Report from Study
  Country: CN (occurrence: CN)
  Receive Date: 20121025
  Receipt Date: 20140225
  Transmission Date: 20141002
  Serious: Yes (Hospitalization, Other)
  Sender: FDA-Public Use
  Company Number: CN-ROCHE-1147586

PATIENT
  Age: 58 Year
  Sex: Female
  Weight: 48 kg

DRUGS (10)
  1. CELLCEPT [Suspect]
     Indication: RENAL TRANSPLANT
     Route: 048
     Dates: start: 20050603
  2. CELLCEPT [Suspect]
     Route: 048
  3. PREDNISONE [Suspect]
     Indication: RENAL TRANSPLANT
     Route: 048
     Dates: start: 20050603, end: 200507
  4. PREDNISONE [Suspect]
     Route: 048
     Dates: start: 200507, end: 200508
  5. PREDNISONE [Suspect]
     Route: 048
     Dates: start: 200508, end: 200509
  6. PREDNISONE [Suspect]
     Route: 048
     Dates: start: 200509, end: 200509
  7. PREDNISONE [Suspect]
     Route: 048
     Dates: start: 200509
  8. PREDNISONE [Suspect]
     Route: 048
  9. PROGRAF [Concomitant]
     Indication: RENAL TRANSPLANT
     Route: 048
     Dates: start: 20050603
  10. PROGRAF [Concomitant]
     Route: 048

REACTIONS (6)
  - Bladder cancer [Recovered/Resolved]
  - Ureteric cancer [Recovered/Resolved]
  - Bladder neoplasm [Recovered/Resolved]
  - Osteonecrosis [Not Recovered/Not Resolved]
  - Ureteral neoplasm [Recovered/Resolved]
  - Malignant neoplasm of renal pelvis [Recovered/Resolved]
